FAERS Safety Report 19154125 (Version 1)
Quarter: 2021Q2

REPORT INFORMATION
  Report Type: Spontaneous
  Country: GB (occurrence: GB)
  Receive Date: 20210419
  Receipt Date: 20210419
  Transmission Date: 20210717
  Serious: Yes (Other)
  Sender: FDA-Public Use
  Company Number: GB-MYLANLABS-2021M1022816

PATIENT
  Age: 53 Year
  Sex: Female
  Weight: 90.71 kg

DRUGS (4)
  1. FEMOSTON [Concomitant]
     Active Substance: DYDROGESTERONE\ESTRADIOL
     Dosage: UNK
  2. VITAMIN D                          /00107901/ [Concomitant]
     Active Substance: ERGOCALCIFEROL
     Dosage: UNK
  3. SERTRALINE [Suspect]
     Active Substance: SERTRALINE HYDROCHLORIDE
     Indication: ANXIETY
     Dosage: 50 MILLIGRAM
     Route: 048
     Dates: start: 20201210
  4. OMEPRAZOLE. [Concomitant]
     Active Substance: OMEPRAZOLE
     Dosage: UNK

REACTIONS (8)
  - Dry mouth [Not Recovered/Not Resolved]
  - Food craving [Unknown]
  - Somnolence [Not Recovered/Not Resolved]
  - Fatigue [Unknown]
  - Abnormal weight gain [Not Recovered/Not Resolved]
  - Trismus [Not Recovered/Not Resolved]
  - Disturbance in attention [Unknown]
  - Disturbance in sexual arousal [Not Recovered/Not Resolved]

NARRATIVE: CASE EVENT DATE: 20201212
